FAERS Safety Report 9311748 (Version 1)
Quarter: 2013Q2

REPORT INFORMATION
  Report Type: Report from Study
  Country: US (occurrence: US)
  Receive Date: 20130528
  Receipt Date: 20130528
  Transmission Date: 20140414
  Serious: Yes (Hospitalization)
  Sender: FDA-Public Use
  Company Number: US-ABBOTT-13P-163-1072601-00

PATIENT
  Age: 52 Year
  Sex: Female

DRUGS (7)
  1. HUMIRA [Suspect]
     Indication: CROHN^S DISEASE
     Dates: start: 20130127, end: 20130401
  2. ZEGERID [Concomitant]
     Indication: DYSPEPSIA
  3. ENTOCORT [Concomitant]
     Indication: CROHN^S DISEASE
  4. MULTIVITAMIN [Concomitant]
     Indication: PRODUCT USED FOR UNKNOWN INDICATION
     Dosage: DAILY
  5. TYLENOL WITH CODEINE [Concomitant]
     Indication: PAIN
  6. IMURAN [Concomitant]
     Indication: CROHN^S DISEASE
  7. ZINC [Concomitant]
     Indication: PRODUCT USED FOR UNKNOWN INDICATION

REACTIONS (4)
  - Anal fistula [Recovering/Resolving]
  - Crohn^s disease [Recovering/Resolving]
  - Blister [Recovered/Resolved]
  - Rash [Recovered/Resolved]
